FAERS Safety Report 8873826 (Version 2)
Quarter: 2012Q4

REPORT INFORMATION
  Report Type: 
  Country: JP (occurrence: JP)
  Receive Date: 20121030
  Receipt Date: 20121212
  Transmission Date: 20130627
  Serious: Yes (Disabling, Other)
  Sender: FDA-Public Use
  Company Number: JP-ASTRAZENECA-2012SE80444

PATIENT
  Age: 66 Year
  Sex: Male

DRUGS (2)
  1. ANAPEINE [Suspect]
     Indication: EPIDURAL ANAESTHESIA
     Dosage: Intraoperative concentration
     Route: 008
  2. ANAPEINE [Suspect]
     Indication: EPIDURAL ANAESTHESIA
     Dosage: Postoperative concentration
     Route: 008

REACTIONS (1)
  - Spinal cord infarction [Not Recovered/Not Resolved]
